FAERS Safety Report 24901109 (Version 10)
Quarter: 2025Q3

REPORT INFORMATION
  Report Type: Spontaneous
  Country: None (occurrence: CA)
  Receive Date: 20250129
  Receipt Date: 20250924
  Transmission Date: 20251021
  Serious: Yes (Hospitalization, Other)
  Sender: MYLAN
  Company Number: CA-MYLANLABS-2025M1006616

PATIENT
  Age: 75 Year
  Sex: Female

DRUGS (5)
  1. REVATIO [Suspect]
     Active Substance: SILDENAFIL CITRATE
     Indication: Pulmonary arterial hypertension
     Dosage: 20 MILLIGRAM TID (IN 3 DAY)
     Dates: start: 20241220
  2. JARDIANCE [Concomitant]
     Active Substance: EMPAGLIFLOZIN
  3. ALLOPURINOL [Concomitant]
     Active Substance: ALLOPURINOL
  4. AMLODIPINE [Concomitant]
     Active Substance: AMLODIPINE BESYLATE
  5. FUROSEMIDE [Concomitant]
     Active Substance: FUROSEMIDE

REACTIONS (7)
  - Cardiac failure congestive [Unknown]
  - Peripheral swelling [Unknown]
  - Cardiac pacemaker insertion [Unknown]
  - Hospitalisation [Recovered/Resolved]
  - Nasopharyngitis [Unknown]
  - Haemoglobin decreased [Unknown]
  - Diarrhoea [Unknown]

NARRATIVE: CASE EVENT DATE: 20250407
